FAERS Safety Report 13682477 (Version 1)
Quarter: 2017Q2

REPORT INFORMATION
  Report Type: Spontaneous
  Country: US (occurrence: US)
  Receive Date: 20170622
  Receipt Date: 20170622
  Transmission Date: 20170830
  Serious: No
  Sender: FDA-Public Use
  Company Number: None

PATIENT
  Age: 50 Year
  Sex: Female

DRUGS (1)
  1. HUMIRA [Suspect]
     Active Substance: ADALIMUMAB
     Indication: RHEUMATOID ARTHRITIS
     Dosage: 40MG EVERY OTHER WEEK SUB-Q
     Route: 058
     Dates: start: 20160526, end: 20170601

REACTIONS (2)
  - Pain [None]
  - Drug effect decreased [None]

NARRATIVE: CASE EVENT DATE: 20170601
